FAERS Safety Report 5415216-5 (Version None)
Quarter: 2007Q3

REPORT INFORMATION
  Report Type: 
  Country: None (occurrence: None)
  Receive Date: 20070815
  Receipt Date: 20070803
  Transmission Date: 20080115
  Serious: Yes (Hospitalization)
  Sender: FDA-Public Use
  Company Number: DE-AMGEN-UK237958

PATIENT
  Sex: Male
  Weight: 65 kg

DRUGS (1)
  1. NEUPOGEN [Suspect]
     Indication: BLOOD STEM CELL HARVEST
     Route: 058
     Dates: start: 20050708, end: 20050712

REACTIONS (6)
  - AUTOIMMUNE THYROIDITIS [None]
  - DIARRHOEA [None]
  - LEUKOPENIA [None]
  - LIVER FUNCTION TEST ABNORMAL [None]
  - PERFORMANCE STATUS DECREASED [None]
  - WEIGHT DECREASED [None]
